FAERS Safety Report 6556357-9 (Version None)
Quarter: 2010Q1

REPORT INFORMATION
  Report Type: 
  Country: None (occurrence: None)
  Receive Date: 20100128
  Receipt Date: 20100120
  Transmission Date: 20100710
  Serious: Yes (Other)
  Sender: FDA-Public Use
  Company Number: US-PFIZER INC-2010008826

PATIENT
  Sex: Male
  Weight: 86 kg

DRUGS (9)
  1. CAMPTOSAR [Suspect]
     Indication: LUNG NEOPLASM MALIGNANT
     Dosage: 70 MG/M2, UNK
     Dates: start: 20100111
  2. DILAUDID [Concomitant]
     Dosage: 2 MG EVERY 4 HRS AS NEEDED
  3. REGLAN [Concomitant]
     Dosage: 10 MG 4X/DAY,
  4. METOPROLOL [Concomitant]
     Dosage: 50 MG 1X/DAY
     Route: 048
  5. ZOFRAN [Concomitant]
     Dosage: 8 MG EVERY 8 HRS AS NEEDED,
     Route: 048
  6. ACETYLSALICYLIC ACID [Concomitant]
     Dosage: 81 MG, TABLET
     Route: 048
  7. FISH OIL [Concomitant]
     Dosage: UNK
  8. GABAPENTIN [Concomitant]
     Dosage: UNK
  9. ETOPOSIDE [Concomitant]
     Indication: CHEMOTHERAPY
     Dosage: UNK

REACTIONS (1)
  - HAEMOLYTIC ANAEMIA [None]
